FAERS Safety Report 7589659-8 (Version None)
Quarter: 2011Q3

REPORT INFORMATION
  Report Type: 
  Country: None (occurrence: None)
  Receive Date: 20110705
  Receipt Date: 20110629
  Transmission Date: 20111222
  Serious: Yes (Hospitalization)
  Sender: FDA-Public Use
  Company Number: FR-ROCHE-787072

PATIENT
  Age: 55 Year
  Sex: Male

DRUGS (5)
  1. ATORVASTATIN CALCIUM [Concomitant]
  2. TRANXENE [Concomitant]
  3. ROCEPHIN [Suspect]
     Dosage: INDICATION: FOR URINARY INFECTION AND ERYSIPELAS.
     Route: 065
     Dates: start: 20110620
  4. DITROPAN [Concomitant]
  5. RABEPRAZOLE SODIUM [Concomitant]

REACTIONS (1)
  - GOUT [None]
